FAERS Safety Report 4412496-X (Version None)
Quarter: 2004Q2

REPORT INFORMATION
  Report Type: 
  Country: None (occurrence: None)
  Receive Date: 20040630
  Receipt Date: 20040405
  Transmission Date: 20050107
  Serious: No
  Sender: FDA-Public Use
  Company Number: 04P-163-0255944-00

PATIENT
  Age: 50 Year
  Sex: Female

DRUGS (15)
  1. HUMIRA [Suspect]
     Indication: RHEUMATOID ARTHRITIS
     Dosage: 40 MG, 1 IN 2 WK, SUBCUTANEOUS
     Route: 058
     Dates: start: 20040323
  2. FOLIC ACID [Concomitant]
  3. GLYCOPYRRONIUM BROMIDE [Concomitant]
  4. BUPROPION HYDROCHLORIDE [Concomitant]
  5. ESOMEPRAZOLE [Concomitant]
  6. CALCIUM [Concomitant]
  7. SULFAZINE [Concomitant]
  8. ATENOLOL [Concomitant]
  9. QUETIAPINE [Concomitant]
  10. QUINESTROL [Concomitant]
  11. GARLIC [Concomitant]
  12. FISH OIL [Concomitant]
  13. TOCOPHEROL CONCENTRATE CAP [Concomitant]
  14. ASPIRIN [Concomitant]
  15. CENTRUM PERFORMANCE [Concomitant]

REACTIONS (4)
  - INJECTION SITE ERYTHEMA [None]
  - PRURITUS GENERALISED [None]
  - RASH GENERALISED [None]
  - RASH MACULO-PAPULAR [None]
